FAERS Safety Report 13185014 (Version 1)
Quarter: 2017Q1

REPORT INFORMATION
  Report Type: Report from Study
  Country: US (occurrence: US)
  Receive Date: 20170203
  Receipt Date: 20170203
  Transmission Date: 20170428
  Serious: Yes (Hospitalization, Other)
  Sender: FDA-Public Use
  Company Number: US-JNJFOC-20160609864

PATIENT
  Age: 47 Year
  Sex: Male
  Weight: 106.6 kg

DRUGS (9)
  1. BENADRYL [Concomitant]
     Active Substance: DIPHENHYDRAMINE HYDROCHLORIDE
     Route: 042
     Dates: start: 20160527
  2. REMICADE [Suspect]
     Active Substance: INFLIXIMAB
     Indication: CROHN^S DISEASE
     Route: 042
  3. REMICADE [Suspect]
     Active Substance: INFLIXIMAB
     Indication: CROHN^S DISEASE
     Route: 042
     Dates: start: 20160602, end: 201606
  4. WARFARIN [Concomitant]
     Active Substance: WARFARIN
     Indication: ANTICOAGULANT THERAPY
     Dosage: 5 MG ON MON,WED, FRI,SAT AND 7.5 MG ON TUE AND THU.
     Route: 065
     Dates: start: 201505
  5. REMICADE [Suspect]
     Active Substance: INFLIXIMAB
     Indication: CROHN^S DISEASE
     Route: 042
     Dates: start: 20160527
  6. TYLENOL [Concomitant]
     Active Substance: ACETAMINOPHEN
     Route: 042
     Dates: start: 20160527
  7. FLUOXETINE [Concomitant]
     Active Substance: FLUOXETINE HYDROCHLORIDE
     Route: 065
  8. VITAMIN B12 [Concomitant]
     Active Substance: CYANOCOBALAMIN
     Route: 030
  9. VITAMIN D [Concomitant]
     Active Substance: CHOLECALCIFEROL
     Route: 048

REACTIONS (13)
  - Influenza like illness [Recovered/Resolved]
  - Surgery [Unknown]
  - Surgery [Unknown]
  - Gilbert^s syndrome [Unknown]
  - Crohn^s disease [Unknown]
  - Infusion related reaction [Recovering/Resolving]
  - Joint swelling [Recovered/Resolved]
  - Incision site erythema [Recovered/Resolved]
  - Incision site swelling [Recovered/Resolved]
  - Serum sickness-like reaction [Recovering/Resolving]
  - Chills [Recovered/Resolved]
  - Portal vein thrombosis [Recovered/Resolved]
  - Pyrexia [Recovered/Resolved]

NARRATIVE: CASE EVENT DATE: 2000
